FAERS Safety Report 8157594 (Version 2)
Quarter: 2017Q3

REPORT INFORMATION
  Report Type: Spontaneous
  Country: DE (occurrence: DE)
  Receive Date: 20110927
  Receipt Date: 20170918
  Transmission Date: 20171128
  Serious: Yes (Other)
  Sender: FDA-Public Use
  Company Number: DE-PFIZER INC-2011224383

PATIENT
  Age: 56 Year
  Sex: Female

DRUGS (6)
  1. TACROLIMUS. [Interacting]
     Active Substance: TACROLIMUS
     Indication: IMMUNOSUPPRESSANT DRUG THERAPY
     Dosage: UNK, (LOWEST DOSE)
  2. MYCOPHENOLATE MOFETIL. [Interacting]
     Active Substance: MYCOPHENOLATE MOFETIL
     Indication: IMMUNOSUPPRESSANT DRUG THERAPY
  3. MEROPENEM. [Suspect]
     Active Substance: MEROPENEM
     Indication: ESCHERICHIA INFECTION
  4. CORTISONE [Interacting]
     Active Substance: CORTISONE\HYDROCORTISONE
     Indication: IMMUNOSUPPRESSANT DRUG THERAPY
  5. VORICONAZOLE. [Interacting]
     Active Substance: VORICONAZOLE
  6. SIROLIMUS. [Interacting]
     Active Substance: SIROLIMUS
     Indication: IMMUNOSUPPRESSANT DRUG THERAPY

REACTIONS (3)
  - Post transplant lymphoproliferative disorder [Recovering/Resolving]
  - Drug interaction [Unknown]
  - Hepatic enzyme increased [Unknown]
